FAERS Safety Report 17858737 (Version 1)
Quarter: 2020Q2

REPORT INFORMATION
  Report Type: Spontaneous
  Country: US (occurrence: US)
  Receive Date: 20200603
  Receipt Date: 20200603
  Transmission Date: 20200714
  Serious: Yes (Other)
  Sender: FDA-Public Use
  Company Number: None

PATIENT
  Age: 57 Year
  Sex: Male
  Weight: 60 kg

DRUGS (14)
  1. REMDESIVIR. [Suspect]
     Active Substance: REMDESIVIR
     Indication: COVID-19
     Dates: start: 20200523, end: 20200525
  2. RAMELTEON [Concomitant]
     Active Substance: RAMELTEON
     Dates: start: 20200520
  3. GABAPENTIN. [Concomitant]
     Active Substance: GABAPENTIN
     Dates: start: 20200520
  4. DIVALPROEX [Concomitant]
     Active Substance: DIVALPROEX SODIUM
     Dates: start: 20200520, end: 20200527
  5. CLONAZEPAM. [Concomitant]
     Active Substance: CLONAZEPAM
     Dates: start: 20200520
  6. LACTULOSE. [Concomitant]
     Active Substance: LACTULOSE
     Dates: start: 20200520
  7. CHOLECALCIFEROL [Concomitant]
     Active Substance: CHOLECALCIFEROL
     Dates: start: 20200520, end: 20200527
  8. FUROSEMIDE. [Concomitant]
     Active Substance: FUROSEMIDE
     Dates: start: 20200523, end: 20200523
  9. LAMOTRIGINE. [Concomitant]
     Active Substance: LAMOTRIGINE
     Dates: start: 20200520
  10. POTASSIUM CHLORIDE. [Concomitant]
     Active Substance: POTASSIUM CHLORIDE
     Dates: start: 20200523, end: 20200523
  11. PREDNISONE. [Concomitant]
     Active Substance: PREDNISONE
     Dates: start: 20200520, end: 20200527
  12. TAMSULOSIN [Concomitant]
     Active Substance: TAMSULOSIN
     Dates: start: 20200520
  13. RISPERIDONE. [Concomitant]
     Active Substance: RISPERIDONE
     Dates: start: 20200520
  14. PIPERACILLIN AND TAZOBACTAM [Concomitant]
     Active Substance: PIPERACILLIN SODIUM\TAZOBACTAM SODIUM
     Dates: start: 20200520, end: 20200528

REACTIONS (1)
  - Bradycardia [None]

NARRATIVE: CASE EVENT DATE: 20200524
